FAERS Safety Report 9535960 (Version 1)
Quarter: 2013Q2

REPORT INFORMATION
  Report Type: Spontaneous
  Country: US (occurrence: None)
  Receive Date: 20130507
  Receipt Date: 20130507
  Transmission Date: 20140414
  Serious: No
  Sender: FDA-Public Use
  Company Number: PHEH2012US024534

PATIENT
  Age: 89 Year
  Sex: Female
  Weight: 56.4 kg

DRUGS (3)
  1. EVEROLIMUS (RAD) TABLET [Suspect]
     Indication: BREAST CANCER
     Route: 048
     Dates: start: 20121025, end: 20121107
  2. MONOPRIL HCT ( FOSINOPRIL SODIUM, HYDROCHLOROTHIAZIDE) [Concomitant]
  3. AROMASIN ( EXEMESTANE) [Concomitant]

REACTIONS (7)
  - Decreased appetite [None]
  - Fatigue [None]
  - Asthenia [None]
  - Headache [None]
  - Diarrhoea [None]
  - Abdominal pain [None]
  - Drug ineffective [None]
